FAERS Safety Report 4847257-0 (Version None)
Quarter: 2005Q4

REPORT INFORMATION
  Report Type: 
  Country: None (occurrence: None)
  Receive Date: 20051207
  Receipt Date: 20051130
  Transmission Date: 20060501
  Serious: Yes (Life-Threatening, Hospitalization)
  Sender: FDA-Public Use
  Company Number: GB-GLAXOSMITHKLINE-B0402425A

PATIENT
  Age: 79 Year
  Weight: 75 kg

DRUGS (7)
  1. RANITIDINE [Suspect]
     Dosage: 150MG TWICE PER DAY
     Route: 065
  2. RAMIPRIL [Suspect]
     Route: 065
  3. FUROSEMIDE [Suspect]
     Dosage: 40MG PER DAY
     Route: 065
  4. DIGOXIN [Concomitant]
     Dosage: 125MCG PER DAY
     Route: 065
  5. ASPIRIN [Concomitant]
     Dosage: 75MG PER DAY
     Route: 065
  6. FENOFIBRATE [Concomitant]
     Dosage: 267MG PER DAY
     Route: 065
  7. HYPROMELLOSE [Concomitant]
     Route: 047

REACTIONS (4)
  - ABDOMINAL PAIN [None]
  - DIARRHOEA [None]
  - PANCREATITIS HAEMORRHAGIC [None]
  - VOMITING [None]
